FAERS Safety Report 4644471-4 (Version None)
Quarter: 2005Q2

REPORT INFORMATION
  Report Type: 
  Country: None (occurrence: None)
  Receive Date: 20050331
  Receipt Date: 20041230
  Transmission Date: 20051028
  Serious: No
  Sender: FDA-Public Use
  Company Number: 04P-163-0285029-00

PATIENT
  Age: 70 Year
  Sex: Female

DRUGS (4)
  1. HUMIRA [Suspect]
     Indication: RHEUMATOID ARTHRITIS
     Dosage: 40 MG, 1 IN 2 WK, SUBCUTANEOUS
     Route: 058
     Dates: start: 20031201
  2. PANTOPRAZOLE SODIUM [Concomitant]
  3. FAMOTIDINE [Concomitant]
  4. OMEPRAZOLE [Concomitant]

REACTIONS (5)
  - ERUCTATION [None]
  - NAUSEA [None]
  - TONGUE COATED [None]
  - TONGUE DISCOLOURATION [None]
  - TONGUE DRY [None]
